FAERS Safety Report 21270580 (Version 3)
Quarter: 2022Q4

REPORT INFORMATION
  Report Type: Spontaneous
  Country: US (occurrence: US)
  Receive Date: 20220830
  Receipt Date: 20221028
  Transmission Date: 20230113
  Serious: Yes (Other)
  Sender: FDA-Public Use
  Company Number: US-PFIZER INC-202201100431

PATIENT
  Age: 69 Year
  Sex: Female
  Weight: 70.295 kg

DRUGS (1)
  1. PANTOPRAZOLE [Suspect]
     Active Substance: PANTOPRAZOLE
     Dosage: UNK

REACTIONS (12)
  - Thrombosis [Unknown]
  - Paraesthesia [Unknown]
  - Tremor [Unknown]
  - Nausea [Unknown]
  - Dizziness [Unknown]
  - Rash [Unknown]
  - Pruritus [Unknown]
  - Feeling jittery [Unknown]
  - Decreased appetite [Unknown]
  - Chest pain [Unknown]
  - Pulse abnormal [Unknown]
  - Electrocardiogram abnormal [Unknown]
